FAERS Safety Report 10070740 (Version 2)
Quarter: 2014Q2

REPORT INFORMATION
  Report Type: Spontaneous
  Country: US (occurrence: US)
  Receive Date: 20140410
  Receipt Date: 20140613
  Transmission Date: 20141212
  Serious: Yes (Other)
  Sender: FDA-Public Use
  Company Number: US-PFIZER INC-2014099503

PATIENT
  Age: 61 Year
  Sex: Male
  Weight: 99.77 kg

DRUGS (5)
  1. LIPITOR [Suspect]
     Indication: BLOOD CHOLESTEROL INCREASED
     Dosage: UNK
     Dates: end: 2005
  2. LIPITOR [Interacting]
     Indication: HYPERLIPIDAEMIA
  3. SPORANOX [Interacting]
     Indication: FUNGAL INFECTION
     Dosage: UNK
  4. SPORANOX [Interacting]
     Indication: LUNG INFECTION
  5. ADVAIR DISKUS [Concomitant]
     Indication: ASTHMA
     Dosage: 500 MCG/50 MCG, 2X/DAY

REACTIONS (3)
  - Drug interaction [Not Recovered/Not Resolved]
  - Neuropathy peripheral [Not Recovered/Not Resolved]
  - Gait disturbance [Unknown]
